FAERS Safety Report 5711274-9 (Version None)
Quarter: 2008Q2

REPORT INFORMATION
  Report Type: 
  Country: None (occurrence: None)
  Receive Date: 20080418
  Receipt Date: 20080418
  Transmission Date: 20081010
  Serious: Yes (Hospitalization)
  Sender: FDA-Public Use
  Company Number: None

PATIENT
  Sex: Male
  Weight: 105 kg

DRUGS (1)
  1. ZYPREXA [Suspect]
     Dosage: ONCE DAILY PO
     Route: 048

REACTIONS (5)
  - DRY MOUTH [None]
  - INCONTINENCE [None]
  - POLLAKIURIA [None]
  - POLYDIPSIA [None]
  - POLYURIA [None]
